FAERS Safety Report 6333778-0 (Version None)
Quarter: 2009Q3

REPORT INFORMATION
  Report Type: 
  Country: None (occurrence: None)
  Receive Date: 20090829
  Receipt Date: 20090527
  Transmission Date: 20100115
  Serious: No
  Sender: FDA-Public Use
  Company Number: US-ABBOTT-09P-163-0576007-00

PATIENT
  Sex: Female

DRUGS (2)
  1. SIMCOR [Suspect]
     Indication: BLOOD CHOLESTEROL INCREASED
     Dosage: 500MG/20MG AT BEDTIME
     Dates: start: 20090501, end: 20090501
  2. DIOVAN [Concomitant]
     Indication: DRUG USE FOR UNKNOWN INDICATION

REACTIONS (7)
  - DYSPNOEA [None]
  - ERYTHEMA [None]
  - FLUSHING [None]
  - PALPITATIONS [None]
  - RASH MACULAR [None]
  - RASH PAPULAR [None]
  - SKIN BURNING SENSATION [None]
